FAERS Safety Report 4900441-X (Version None)
Quarter: 2006Q1

REPORT INFORMATION
  Report Type: 
  Country: None (occurrence: None)
  Receive Date: 20060126
  Receipt Date: 20051115
  Transmission Date: 20060701
  Serious: Yes (Other)
  Sender: FDA-Public Use
  Company Number: US200511001690

PATIENT
  Age: 14 Year
  Sex: Male

DRUGS (4)
  1. STRATTERA [Suspect]
     Indication: ATTENTION DEFICIT/HYPERACTIVITY DISORDER
     Dosage: 10 MG
  2. SINGULAIR ^MERCK^ (MONTELUKAST SODIUM) [Concomitant]
  3. PROVENTIL HFA ^SCHERING-PLOUGH^ (SALBUTAMOL) [Concomitant]
  4. FLOVENT [Concomitant]

REACTIONS (3)
  - DEPRESSED MOOD [None]
  - FEELING OF DESPAIR [None]
  - SUICIDAL IDEATION [None]
